FAERS Safety Report 13496119 (Version 1)
Quarter: 2017Q2

REPORT INFORMATION
  Report Type: Spontaneous
  Country: US (occurrence: US)
  Receive Date: 20170428
  Receipt Date: 20170428
  Transmission Date: 20170830
  Serious: No
  Sender: FDA-Public Use
  Company Number: US-GLAXOSMITHKLINE-US2017060169

PATIENT
  Age: 68 Year
  Sex: Male

DRUGS (2)
  1. FLONASE [Suspect]
     Active Substance: FLUTICASONE PROPIONATE
     Indication: HYPERSENSITIVITY
     Dosage: TAKE A LOT OF IT
  2. FLONASE SENSIMIST ALLERGY RELIEF [Suspect]
     Active Substance: FLUTICASONE FUROATE
     Indication: DUST ALLERGY
     Dosage: UNK
     Dates: start: 20170418, end: 20170424

REACTIONS (5)
  - Drug ineffective [Unknown]
  - Overdose [Unknown]
  - Dyspnoea [Recovering/Resolving]
  - Nasal congestion [Not Recovered/Not Resolved]
  - Product quality issue [Unknown]

NARRATIVE: CASE EVENT DATE: 20170420
